FAERS Safety Report 8624302-8 (Version None)
Quarter: 2012Q3

REPORT INFORMATION
  Report Type: 
  Country: None (occurrence: None)
  Receive Date: 20120827
  Receipt Date: 20120827
  Transmission Date: 20120928
  Serious: Yes (Death, Life-Threatening)
  Sender: FDA-Public Use
  Company Number: US-BRACCO-008298

PATIENT
  Sex: Female
  Weight: 70 kg

DRUGS (16)
  1. COREG [Concomitant]
  2. ASPIRIN [Concomitant]
  3. CALCIUM WITH VITAMIN D [Concomitant]
  4. LASIX [Concomitant]
  5. ISOVUE-370 [Suspect]
     Indication: COMPUTERISED TOMOGRAM
     Dosage: LEFT ARM (SITE OF ADMINISTRATION)
     Route: 042
     Dates: start: 20120706, end: 20120706
  6. VITAMIN B12 NOS [Concomitant]
  7. ISOVUE-370 [Suspect]
     Indication: PARANEOPLASTIC SYNDROME
     Dosage: LEFT ARM (SITE OF ADMINISTRATION)
     Route: 042
     Dates: start: 20120706, end: 20120706
  8. LOPID [Concomitant]
  9. POTASSIUM CHLORIDE [Concomitant]
  10. IRON [Concomitant]
  11. HYDRALAZINE HCL [Concomitant]
  12. CYMBALTA [Concomitant]
  13. ZOCOR [Concomitant]
  14. SYNTHROID [Concomitant]
  15. GLUCOPHAGE [Concomitant]
  16. SLOW-MAG [Concomitant]

REACTIONS (2)
  - CARDIO-RESPIRATORY ARREST [None]
  - PULMONARY EMBOLISM [None]
